FAERS Safety Report 6576022-1 (Version None)
Quarter: 2010Q1

REPORT INFORMATION
  Report Type: 
  Country: None (occurrence: None)
  Receive Date: 20100209
  Receipt Date: 20100128
  Transmission Date: 20100710
  Serious: Yes (Hospitalization)
  Sender: FDA-Public Use
  Company Number: PHHY2010JP00838

PATIENT
  Age: 80 Year
  Sex: Female

DRUGS (4)
  1. DIOVAN [Suspect]
     Indication: HYPERTENSION
     Dosage: 80 MG, DAILY
     Route: 048
     Dates: start: 20100107
  2. AMLODIPINE [Concomitant]
     Dosage: UNK
     Route: 048
  3. PLAVIX [Concomitant]
     Route: 048
  4. LIVALO [Concomitant]
     Route: 048

REACTIONS (1)
  - HYPOTHERMIA [None]
